FAERS Safety Report 14477564 (Version 1)
Quarter: 2018Q1

REPORT INFORMATION
  Report Type: Report from Study
  Country: US (occurrence: US)
  Receive Date: 20180201
  Receipt Date: 20180201
  Transmission Date: 20180509
  Serious: No
  Sender: FDA-Public Use
  Company Number: US-EXELIXIS-CABO-17011114

PATIENT
  Sex: Male

DRUGS (27)
  1. CALCITRIOL. [Concomitant]
     Active Substance: CALCITRIOL
  2. CYANOCOBALAMIN. [Concomitant]
     Active Substance: CYANOCOBALAMIN
  3. INLYTA [Concomitant]
     Active Substance: AXITINIB
  4. REFRESH [Concomitant]
     Active Substance: UNSPECIFIED INGREDIENT
  5. NITROGLYCERIN. [Concomitant]
     Active Substance: NITROGLYCERIN
  6. FOLIC ACID. [Concomitant]
     Active Substance: FOLIC ACID
  7. COLCHICINE. [Concomitant]
     Active Substance: COLCHICINE
  8. ANDROGEL [Concomitant]
     Active Substance: TESTOSTERONE
  9. ACETAMIN [Concomitant]
     Active Substance: ACETAMINOPHEN
  10. LEVOTHYROXIN [Concomitant]
     Active Substance: LEVOTHYROXINE
  11. FAMOTIDINE. [Concomitant]
     Active Substance: FAMOTIDINE
  12. VITAMIN D3 [Concomitant]
     Active Substance: CHOLECALCIFEROL
  13. BUMETANIDE. [Concomitant]
     Active Substance: BUMETANIDE
  14. CARVEDILOL. [Concomitant]
     Active Substance: CARVEDILOL
  15. ASPIRIN. [Concomitant]
     Active Substance: ASPIRIN
  16. XGEVA [Concomitant]
     Active Substance: DENOSUMAB
  17. CABOMETYX [Suspect]
     Active Substance: CABOZANTINIB S-MALATE
     Indication: RENAL CANCER
     Dosage: 40 MG, QD
     Route: 048
     Dates: start: 20170801
  18. PRESERVISION [Concomitant]
     Active Substance: MINERALS\VITAMINS
  19. LOSARTAN POTASSIUM. [Concomitant]
     Active Substance: LOSARTAN POTASSIUM
  20. VITAMIN D [Concomitant]
     Active Substance: CHOLECALCIFEROL
  21. OXYCODONE/APAP [Concomitant]
     Active Substance: ACETAMINOPHEN\OXYCODONE HYDROCHLORIDE
  22. TRAMADOL HCL [Concomitant]
     Active Substance: TRAMADOL HYDROCHLORIDE
  23. DULOXETINE. [Concomitant]
     Active Substance: DULOXETINE
  24. ATORVASTATIN [Concomitant]
     Active Substance: ATORVASTATIN
  25. ALLOPURINOL. [Concomitant]
     Active Substance: ALLOPURINOL
  26. AMOXICILLIN. [Concomitant]
     Active Substance: AMOXICILLIN
  27. PREDNISONE. [Concomitant]
     Active Substance: PREDNISONE

REACTIONS (1)
  - Dyspnoea [Unknown]
